FAERS Safety Report 10067768 (Version 6)
Quarter: 2014Q3

REPORT INFORMATION
  Report Type: Report from Study
  Country: DE (occurrence: DE)
  Receive Date: 20140409
  Receipt Date: 20140808
  Transmission Date: 20150326
  Serious: Yes (Life-Threatening, Hospitalization)
  Sender: FDA-Public Use
  Company Number: DE-CELGENEUS-062-50794-14013010

PATIENT
  Age: 81 Year
  Sex: Female
  Weight: 83.7 kg

DRUGS (9)
  1. NEULASTA [Concomitant]
     Active Substance: PEGFILGRASTIM
     Indication: PROPHYLAXIS
     Route: 058
     Dates: start: 20131209
  2. BELOC ZOK MITE [Concomitant]
     Active Substance: METOPROLOL SUCCINATE
     Indication: HYPERTENSION
     Route: 048
  3. FAVISTAN [Concomitant]
     Indication: PRODUCT USED FOR UNKNOWN INDICATION
     Dosage: 20 MILLIGRAM
     Route: 065
  4. VIDAZA [Suspect]
     Active Substance: AZACITIDINE
     Indication: MYELODYSPLASTIC SYNDROME
     Route: 058
     Dates: start: 20131112
  5. VIDAZA [Suspect]
     Active Substance: AZACITIDINE
     Route: 058
     Dates: end: 20140114
  6. EXFORGE HCT [Concomitant]
     Active Substance: AMLODIPINE BESYLATE\HYDROCHLOROTHIAZIDE\VALSARTAN
     Indication: HYPERTENSION
     Dosage: 10/320/25
     Route: 048
  7. GRANISETRON [Concomitant]
     Active Substance: GRANISETRON
     Indication: PROPHYLAXIS
     Route: 048
     Dates: start: 20131118
  8. METAMIZOLE [Concomitant]
     Active Substance: METAMIZOLE
     Indication: PROPHYLAXIS
     Route: 048
     Dates: start: 20131202
  9. CIPROBAY [Concomitant]
     Active Substance: CIPROFLOXACIN
     Indication: PROPHYLAXIS
     Route: 048
     Dates: start: 20131112

REACTIONS (2)
  - Febrile neutropenia [Recovered/Resolved with Sequelae]
  - Lymph node abscess [Not Recovered/Not Resolved]

NARRATIVE: CASE EVENT DATE: 20140115
